FAERS Safety Report 5044693-7 (Version None)
Quarter: 2006Q3

REPORT INFORMATION
  Report Type: 
  Country: None (occurrence: None)
  Receive Date: 20060706
  Receipt Date: 20060601
  Transmission Date: 20061208
  Serious: Yes (Death, Life-Threatening, Hospitalization, Disabling)
  Sender: FDA-Public Use
  Company Number: BW-BOEHRINGER INGELHEIM PHARMACEUTICALS, INC.-2006-DE-02863ZA

PATIENT
  Sex: Female
  Weight: 25 kg

DRUGS (1)
  1. NEVIRAPINE [Suspect]
     Indication: HIV INFECTION
     Route: 048
     Dates: start: 20060508, end: 20060521

REACTIONS (1)
  - STEVENS-JOHNSON SYNDROME [None]
